FAERS Safety Report 7245419-9 (Version None)
Quarter: 2011Q1

REPORT INFORMATION
  Report Type: 
  Country: None (occurrence: None)
  Receive Date: 20110126
  Receipt Date: 20110114
  Transmission Date: 20110831
  Serious: Yes (Other)
  Sender: FDA-Public Use
  Company Number: US-ENDO PHARMACEUTICALS INC.-OPER20110011

PATIENT
  Age: 46 Year
  Sex: Male

DRUGS (2)
  1. OPANA ER [Suspect]
     Indication: DRUG ABUSE
     Dosage: UNK
     Route: 045
  2. OPANA [Suspect]
     Indication: DRUG ABUSE
     Dosage: UNK
     Route: 045

REACTIONS (3)
  - OVERDOSE [None]
  - DRUG ABUSE [None]
  - INCORRECT ROUTE OF DRUG ADMINISTRATION [None]
